FAERS Safety Report 23569824 (Version 1)
Quarter: 2024Q1

REPORT INFORMATION
  Report Type: Spontaneous
  Country: IT (occurrence: IT)
  Receive Date: 20240227
  Receipt Date: 20240227
  Transmission Date: 20240409
  Serious: Yes (Other)
  Sender: FDA-Public Use
  Company Number: None

PATIENT
  Age: 36 Year
  Sex: Female

DRUGS (2)
  1. TACROLIMUS [Suspect]
     Active Substance: TACROLIMUS
     Indication: Off label use
     Dosage: UNK
     Route: 003
     Dates: start: 2022
  2. TACROLIMUS [Suspect]
     Active Substance: TACROLIMUS
     Indication: Lichen sclerosus
     Dosage: UNK
     Route: 003
     Dates: start: 2022

REACTIONS (5)
  - Xerophthalmia [Unknown]
  - Off label use [Unknown]
  - Chronic cutaneous lupus erythematosus [Unknown]
  - Product use in unapproved indication [Unknown]
  - Myalgia [Unknown]

NARRATIVE: CASE EVENT DATE: 20220101
